FAERS Safety Report 6128897-8 (Version None)
Quarter: 2009Q1

REPORT INFORMATION
  Report Type: 
  Country: None (occurrence: None)
  Receive Date: 20090320
  Receipt Date: 20090306
  Transmission Date: 20090719
  Serious: Yes (Hospitalization)
  Sender: FDA-Public Use
  Company Number: SPI200900076

PATIENT
  Age: 78 Year
  Sex: Female
  Weight: 65.8 kg

DRUGS (12)
  1. AMITIZA [Suspect]
     Indication: CONSTIPATION
     Dosage: 8 MCG, BID, ORAL
     Route: 048
     Dates: start: 20090205
  2. METAMUCIL /00029101/ (PLANAGO OVATA) [Concomitant]
  3. SYNTHROID [Concomitant]
  4. PROTONIX /01263201/ (PANTOPRAZOLE) [Concomitant]
  5. ALLEGRA /01314201/ (FEXOFENADINE) [Concomitant]
  6. ASPIRIN [Concomitant]
  7. CALCIUM (CALCIUM) [Concomitant]
  8. GLUCOSAMINE (GLUCOSAMINE) [Concomitant]
  9. ATACAND [Concomitant]
  10. ZOCOR [Concomitant]
  11. XANAX [Concomitant]
  12. MAXALT /01406501/ (RIZATRIPTAN) [Concomitant]

REACTIONS (8)
  - CONSTIPATION [None]
  - DIARRHOEA [None]
  - HYPOAESTHESIA [None]
  - INAPPROPRIATE SCHEDULE OF DRUG ADMINISTRATION [None]
  - LIP DRY [None]
  - NERVE INJURY [None]
  - PAIN IN EXTREMITY [None]
  - THERAPY REGIMEN CHANGED [None]
